FAERS Safety Report 15917914 (Version 8)
Quarter: 2019Q3

REPORT INFORMATION
  Report Type: Spontaneous
  Country: DE (occurrence: DE)
  Receive Date: 20190205
  Receipt Date: 20190923
  Transmission Date: 20191004
  Serious: Yes (Other)
  Sender: FDA-Public Use
  Company Number: DE-AUROBINDO-AUR-APL-2018-059773

PATIENT
  Sex: Female
  Weight: 55 kg

DRUGS (21)
  1. LETROZOLE. [Suspect]
     Active Substance: LETROZOLE
     Indication: BREAST CANCER METASTATIC
     Dosage: 2.5 MILLIGRAM, ONCE A DAY
     Route: 048
     Dates: start: 20180824
  2. KISQALI [Suspect]
     Active Substance: RIBOCICLIB
     Dosage: 400 MILLIGRAM, CYCLICAL (21 DAYS ON /7 DAYS OFF),
     Route: 048
     Dates: start: 20181221, end: 20190117
  3. KISQALI [Suspect]
     Active Substance: RIBOCICLIB
     Dosage: 400 MILLIGRAM, CYCLICAL (21 DAYS ON /7 DAYS OFF)
     Route: 048
     Dates: start: 20190712, end: 20190808
  4. KISQALI [Suspect]
     Active Substance: RIBOCICLIB
     Dosage: 600 MILLIGRAM, CYCLICAL (21 DAYS ON /7 DAYS OFF)
     Route: 048
     Dates: start: 20180824, end: 20180906
  5. KISQALI [Suspect]
     Active Substance: RIBOCICLIB
     Dosage: 400 MILLIGRAM, CYCLICAL (21 DAYS ON /7 DAYS OFF)
     Route: 048
     Dates: start: 20180907, end: 20180913
  6. KISQALI [Suspect]
     Active Substance: RIBOCICLIB
     Dosage: 400 MILLIGRAM, CYCLICAL (21 DAYS ON /7 DAYS OFF)
     Route: 048
     Dates: start: 20180921, end: 20181018
  7. KISQALI [Suspect]
     Active Substance: RIBOCICLIB
     Dosage: 400 MILLIGRAM, CYCLICAL (16 DAYS ON /7 DAYS OFF)
     Route: 048
     Dates: start: 20181221
  8. KISQALI [Suspect]
     Active Substance: RIBOCICLIB
     Dosage: 400 MILLIGRAM, CYCLICAL (21 DAYS ON /7 DAYS OFF)
     Route: 048
     Dates: start: 20180921, end: 20181011
  9. KISQALI [Suspect]
     Active Substance: RIBOCICLIB
     Dosage: 400 MILLIGRAM
     Route: 048
     Dates: start: 20190118, end: 20190214
  10. KISQALI [Suspect]
     Active Substance: RIBOCICLIB
     Indication: BREAST CANCER METASTATIC
     Dosage: 400 MILLIGRAM, ONCE A DAY
     Route: 048
  11. KISQALI [Suspect]
     Active Substance: RIBOCICLIB
     Dosage: 400 MILLIGRAM, CYCLICAL (21 DAYS ON /7 DAYS OFF)
     Route: 048
     Dates: start: 20181019, end: 20181108
  12. KISQALI [Suspect]
     Active Substance: RIBOCICLIB
     Dosage: 400 MILLIGRAM, CYCLICAL (16 DAYS ON /7 DAYS OFF)
     Route: 048
     Dates: start: 20181121, end: 20181206
  13. KISQALI [Suspect]
     Active Substance: RIBOCICLIB
     Dosage: 400 MILLIGRAM, CYCLICAL (21 DAYS ON /7 DAYS OFF),
     Route: 048
     Dates: start: 20190322, end: 20190418
  14. KISQALI [Suspect]
     Active Substance: RIBOCICLIB
     Dosage: 400 MILLIGRAM, CYCLICAL (21 DAYS ON /7 DAYS OFF)
     Route: 048
     Dates: start: 20190614, end: 20190711
  15. KISQALI [Suspect]
     Active Substance: RIBOCICLIB
     Dosage: 400 MILLIGRAM, CYCLICAL (21 DAYS ON /7 DAYS OFF)
     Route: 048
     Dates: start: 20180907, end: 20180920
  16. KISQALI [Suspect]
     Active Substance: RIBOCICLIB
     Dosage: 400 MILLIGRAM, CYCLICAL (21 DAYS ON /7 DAYS OFF),
     Route: 048
     Dates: start: 20181121, end: 20181213
  17. KISQALI [Suspect]
     Active Substance: RIBOCICLIB
     Dosage: 400 MILLIGRAM, CYCLICAL (16 DAYS ON /7 DAYS OFF)
     Route: 048
     Dates: start: 20181019, end: 20181115
  18. KISQALI [Suspect]
     Active Substance: RIBOCICLIB
     Dosage: 400 MILLIGRAM, CYCLICAL (21 DAYS ON /7 DAYS OFF)
     Route: 048
     Dates: start: 20190419, end: 20190516
  19. KISQALI [Suspect]
     Active Substance: RIBOCICLIB
     Dosage: 400 MILLIGRAM, ONCE A DAY
     Route: 048
     Dates: start: 20181019, end: 20181120
  20. KISQALI [Suspect]
     Active Substance: RIBOCICLIB
     Dosage: 400 MILLIGRAM, CYCLICAL (21 DAYS ON /7 DAYS OFF)
     Route: 048
     Dates: start: 20190222, end: 20190321
  21. KISQALI [Suspect]
     Active Substance: RIBOCICLIB
     Dosage: 400 MILLIGRAM, CYCLICAL (21 DAYS ON /7 DAYS OFF)
     Route: 048
     Dates: start: 20190517, end: 20190613

REACTIONS (5)
  - Leukopenia [Recovered/Resolved]
  - Haemoglobin decreased [Unknown]
  - Neutropenia [Recovered/Resolved]
  - Peripheral swelling [Recovered/Resolved]
  - Basophil count increased [Unknown]

NARRATIVE: CASE EVENT DATE: 20181116
